FAERS Safety Report 4541026-7 (Version None)
Quarter: 2004Q4

REPORT INFORMATION
  Report Type: 
  Country: None (occurrence: None)
  Receive Date: 20041228
  Receipt Date: 20041130
  Transmission Date: 20050328
  Serious: Yes (Other)
  Sender: FDA-Public Use
  Company Number: B0358561A

PATIENT
  Age: 45 Year
  Sex: Female

DRUGS (4)
  1. THORAZINE [Suspect]
     Indication: PSYCHOTIC DISORDER
     Dosage: 300 MG / PER DAY
  2. LITHIUM CARBONATE [Suspect]
     Indication: PSYCHOTIC DISORDER
     Dosage: 300 MG /TWICE  PER DAY
  3. HALOPERIDOL [Concomitant]
  4. TRIFLUOPERAZINE HCL [Concomitant]

REACTIONS (3)
  - CATARACT [None]
  - CORNEAL PIGMENTATION [None]
  - EXTRAPYRAMIDAL DISORDER [None]
